FAERS Safety Report 14742630 (Version 3)
Quarter: 2022Q1

REPORT INFORMATION
  Report Type: Spontaneous
  Country: US (occurrence: US)
  Receive Date: 20180410
  Receipt Date: 20220216
  Transmission Date: 20220423
  Serious: No
  Sender: FDA-Public Use
  Company Number: US-BIOGEN-2018BI00547267

PATIENT
  Sex: Female

DRUGS (3)
  1. TYSABRI [Suspect]
     Active Substance: NATALIZUMAB
     Indication: Multiple sclerosis
     Route: 050
     Dates: start: 20171213
  2. TYSABRI [Suspect]
     Active Substance: NATALIZUMAB
     Dosage: SOMETIMES IT WILL BE FOUR WEEKS, SIX WEEKS, OR EIGHT WEEKS
     Route: 065
  3. TYSABRI [Suspect]
     Active Substance: NATALIZUMAB
     Route: 065

REACTIONS (2)
  - Prescribed underdose [Not Recovered/Not Resolved]
  - Stress [Unknown]
